FAERS Safety Report 5464861-X (Version None)
Quarter: 2007Q3

REPORT INFORMATION
  Report Type: 
  Country: None (occurrence: None)
  Receive Date: 20070820
  Receipt Date: 20070502
  Transmission Date: 20080115
  Serious: No
  Sender: FDA-Public Use
  Company Number: TPA2007A00932

PATIENT
  Sex: Female

DRUGS (2)
  1. ROZEREM [Suspect]
     Dosage: PER ORAL
     Route: 048
     Dates: start: 20070401
  2. OTHER PRESCRIBED MEDICATION (ALL OTHER THERAPEUTIC PRODUCTS) [Suspect]

REACTIONS (3)
  - ABNORMAL BEHAVIOUR [None]
  - AGITATION [None]
  - IRRITABILITY [None]
